FAERS Safety Report 17482829 (Version 1)
Quarter: 2020Q1

REPORT INFORMATION
  Report Type: Spontaneous
  Country: IN (occurrence: IN)
  Receive Date: 20200302
  Receipt Date: 20200302
  Transmission Date: 20200409
  Serious: Yes (Other)
  Sender: FDA-Public Use
  Company Number: IN-PFIZER INC-2019090333

PATIENT
  Age: 78 Year
  Sex: Female

DRUGS (3)
  1. ZOLEDRONIC ACID. [Concomitant]
     Active Substance: ZOLEDRONIC ACID
     Dosage: 3.5 MG, UNK
  2. PALBACE [Suspect]
     Active Substance: PALBOCICLIB
     Indication: BREAST CANCER METASTATIC
     Dosage: 100 MG, 1X/DAY
     Route: 048
     Dates: start: 20190226
  3. ANASTRAZOLE [Suspect]
     Active Substance: ANASTROZOLE
     Dosage: 1 MG, UNK

REACTIONS (4)
  - Product use issue [Unknown]
  - Second primary malignancy [Unknown]
  - Rectal cancer [Unknown]
  - Off label use [Unknown]
